FAERS Safety Report 20573173 (Version 1)
Quarter: 2022Q1

REPORT INFORMATION
  Report Type: Spontaneous
  Country: US (occurrence: None)
  Receive Date: 20220309
  Receipt Date: 20220309
  Transmission Date: 20220423
  Serious: No
  Sender: FDA-Public Use
  Company Number: None

PATIENT
  Sex: Female
  Weight: 125.6 kg

DRUGS (12)
  1. ORENCIA [Suspect]
     Active Substance: ABATACEPT
     Indication: Rheumatoid arthritis
     Dosage: FREQUENCY : WEEKLY;?
     Route: 058
     Dates: start: 20210708
  2. ACETAZOLAMIDE [Suspect]
     Active Substance: ACETAZOLAMIDE
  3. HYDROXYCHLOROQUINE [Suspect]
     Active Substance: HYDROXYCHLOROQUINE
  4. METHOTREXATE [Suspect]
     Active Substance: METHOTREXATE
  5. METOPROLOL [Suspect]
     Active Substance: METOPROLOL
  6. PREDNISONE [Suspect]
     Active Substance: PREDNISONE
  7. FOLIC ACID [Suspect]
     Active Substance: FOLIC ACID
  8. VITAMIN B COMPLEX [Suspect]
     Active Substance: CYANOCOBALAMIN\DEXPANTHENOL\NIACINAMIDE\PYRIDOXINE HYDROCHLORIDE\RIBOFLAVIN 5^-PHOSPHATE SODIUM\THIA
  9. AMLODIPINE BESYLATE [Suspect]
     Active Substance: AMLODIPINE BESYLATE
  10. VITAMIN D3 [Suspect]
     Active Substance: CHOLECALCIFEROL
  11. FLUZONE QUADRIVALENT NOS [Suspect]
     Active Substance: INFLUENZA A VIRUS A/CALIFORNIA/7/2009 X-179A (H1N1) ANTIGEN (FORMALDEHYDE INACTIVATED)\INFLUENZA A V
  12. MAGNESIUM OXIDE [Suspect]
     Active Substance: MAGNESIUM OXIDE

REACTIONS (1)
  - Dyspnoea [None]
